FAERS Safety Report 9152117 (Version 4)
Quarter: 2013Q3

REPORT INFORMATION
  Report Type: Spontaneous
  Country: US (occurrence: US)
  Receive Date: 20130308
  Receipt Date: 20130819
  Transmission Date: 20140515
  Serious: Yes (Other)
  Sender: FDA-Public Use
  Company Number: US-009507513-1206USA02654

PATIENT
  Sex: Female
  Weight: 55.33 kg

DRUGS (6)
  1. FOSAMAX [Suspect]
     Indication: OSTEOPOROSIS PROPHYLAXIS
     Dosage: 70 MG, QW
     Route: 048
     Dates: start: 2000, end: 20100801
  2. FOSAMAX PLUS D [Suspect]
     Indication: OSTEOPOROSIS PROPHYLAXIS
     Dosage: 70 MG, QW
     Route: 048
     Dates: end: 20100801
  3. ALENDRONATE SODIUM [Suspect]
     Indication: OSTEOPOROSIS PROPHYLAXIS
     Dosage: 70 MG, QW
     Route: 048
     Dates: start: 2000
  4. ALENDRONATE SODIUM [Suspect]
     Dosage: 70 MG, QD
  5. VITAMINS (UNSPECIFIED) [Concomitant]
     Dosage: 1 UNK, UNK
     Dates: start: 1983
  6. CALCIUM (UNSPECIFIED) (+) VITAMIN D (UNSPECIFIED) [Concomitant]
     Dosage: UNK, QD
     Dates: start: 1983

REACTIONS (32)
  - Hip fracture [Unknown]
  - Intramedullary rod insertion [Unknown]
  - Femur fracture [Unknown]
  - Spinal fracture [Unknown]
  - Debridement [Unknown]
  - Tooth extraction [Unknown]
  - Hypertension [Unknown]
  - Blood cholesterol increased [Unknown]
  - Spinal osteoarthritis [Unknown]
  - Fall [Unknown]
  - Patella fracture [Unknown]
  - Pain [Unknown]
  - Osteoarthritis [Unknown]
  - Chondrocalcinosis [Unknown]
  - Joint effusion [Unknown]
  - Rib fracture [Unknown]
  - Rib fracture [Unknown]
  - Chronic obstructive pulmonary disease [Unknown]
  - Pleural effusion [Unknown]
  - Aortic disorder [Unknown]
  - Osteoporosis [Unknown]
  - Face injury [Unknown]
  - Bone disorder [Unknown]
  - Joint injury [Unknown]
  - Pollakiuria [Unknown]
  - Cataract operation [Unknown]
  - Ulna fracture [Unknown]
  - Spinal pain [Unknown]
  - Contusion [Unknown]
  - Arthralgia [Unknown]
  - Neck pain [Unknown]
  - Musculoskeletal pain [Unknown]
